FAERS Safety Report 4449123-1 (Version None)
Quarter: 2004Q3

REPORT INFORMATION
  Report Type: 
  Country: None (occurrence: None)
  Receive Date: 20040910
  Receipt Date: 20040902
  Transmission Date: 20050211
  Serious: Yes (Death)
  Sender: FDA-Public Use
  Company Number: 2003178898JP

PATIENT
  Age: 70 Year
  Sex: Male

DRUGS (2)
  1. XALATAN [Suspect]
     Dosage: 1 GTT, QD, OPHTHALMIC
     Route: 047
     Dates: start: 20001222
  2. ARTIFICIAL TEARS [Concomitant]

REACTIONS (8)
  - ASCITES [None]
  - CONJUNCTIVAL HYPERAEMIA [None]
  - DEPRESSED LEVEL OF CONSCIOUSNESS [None]
  - HAEMATEMESIS [None]
  - HEPATIC CIRRHOSIS [None]
  - HEPATIC FAILURE [None]
  - IRIS HYPERPIGMENTATION [None]
  - RENAL IMPAIRMENT [None]
